FAERS Safety Report 20979882 (Version 3)
Quarter: 2022Q3

REPORT INFORMATION
  Report Type: Spontaneous
  Country: US (occurrence: None)
  Receive Date: 20220620
  Receipt Date: 20220713
  Transmission Date: 20221027
  Serious: Yes (Other)
  Sender: FDA-Public Use
  Company Number: 2022A215666

PATIENT
  Age: 617 Month
  Sex: Female
  Weight: 74.4 kg

DRUGS (7)
  1. TEZSPIRE [Suspect]
     Active Substance: TEZEPELUMAB-EKKO
     Indication: Asthma
     Dosage: HALF OF DOSE OF TEZSPIRE 210MG ONCE A MONTH
     Route: 065
     Dates: start: 20220601, end: 20220601
  2. FASENRA [Suspect]
     Active Substance: BENRALIZUMAB
     Route: 058
     Dates: start: 201803
  3. XOLAIR [Concomitant]
     Active Substance: OMALIZUMAB
  4. ALBUTEROL [Concomitant]
     Active Substance: ALBUTEROL
     Indication: Anaphylactic reaction
  5. ALBUTEROL [Concomitant]
     Active Substance: ALBUTEROL
     Indication: Bronchospasm
  6. AIMOVIG [Concomitant]
     Active Substance: ERENUMAB-AOOE
  7. EPINEPHRINE [Concomitant]
     Active Substance: EPINEPHRINE
     Indication: Anaphylactic reaction

REACTIONS (14)
  - Dizziness [Recovering/Resolving]
  - Pruritus [Recovering/Resolving]
  - Dyspnoea [Recovering/Resolving]
  - Headache [Recovering/Resolving]
  - Hiatus hernia [Unknown]
  - Anaphylactic reaction [Unknown]
  - Hypersensitivity [Unknown]
  - Asthenia [Unknown]
  - Rhinitis allergic [Unknown]
  - Conjunctivitis allergic [Unknown]
  - Contrast media allergy [Unknown]
  - Gastrooesophageal reflux disease [Unknown]
  - Rash pruritic [Unknown]
  - Product prescribing issue [Unknown]

NARRATIVE: CASE EVENT DATE: 20180301
